FAERS Safety Report 4947982-7 (Version None)
Quarter: 2006Q1

REPORT INFORMATION
  Report Type: 
  Country: None (occurrence: None)
  Receive Date: 20060320
  Receipt Date: 20050929
  Transmission Date: 20060701
  Serious: Yes (Hospitalization)
  Sender: FDA-Public Use
  Company Number: US-MERCK-0510USA00323

PATIENT
  Age: 60 Year
  Sex: Female
  Weight: 77 kg

DRUGS (1)
  1. VIOXX [Suspect]
     Indication: UTERINE LEIOMYOMA
     Route: 048
     Dates: start: 20010101, end: 20040101

REACTIONS (28)
  - ANXIETY [None]
  - ARTHROPATHY [None]
  - BLOOD PRESSURE INCREASED [None]
  - CAROTID ARTERY STENOSIS [None]
  - CHRONIC SINUSITIS [None]
  - CORONARY ARTERY OCCLUSION [None]
  - DRUG HYPERSENSITIVITY [None]
  - DYSPNOEA [None]
  - EPIGASTRIC DISCOMFORT [None]
  - FATIGUE [None]
  - FEELING HOT [None]
  - FUNGAL INFECTION [None]
  - HYPERLIPIDAEMIA [None]
  - HYPERTENSION [None]
  - HYPERVENTILATION [None]
  - HYPONATRAEMIA [None]
  - MENOPAUSAL SYMPTOMS [None]
  - MENTAL STATUS CHANGES [None]
  - PALPITATIONS [None]
  - PANIC ATTACK [None]
  - PARAESTHESIA [None]
  - POLYDIPSIA [None]
  - POLYURIA [None]
  - SHOULDER PAIN [None]
  - TINNITUS [None]
  - TRANSIENT ISCHAEMIC ATTACK [None]
  - VISION BLURRED [None]
  - WEIGHT INCREASED [None]
